FAERS Safety Report 24606903 (Version 2)
Quarter: 2025Q1

REPORT INFORMATION
  Report Type: Spontaneous
  Country: UY (occurrence: UY)
  Receive Date: 20241112
  Receipt Date: 20250113
  Transmission Date: 20250409
  Serious: Yes (Death, Hospitalization, Other)
  Sender: GENMAB
  Company Number: UY-ABBVIE-5989883

PATIENT
  Sex: Male

DRUGS (1)
  1. EPCORITAMAB [Suspect]
     Active Substance: EPCORITAMAB
     Indication: Diffuse large B-cell lymphoma
     Route: 058
     Dates: start: 20241013

REACTIONS (7)
  - Infection [Fatal]
  - Diffuse large B-cell lymphoma recurrent [Unknown]
  - Abdominal neoplasm [Unknown]
  - Tumour flare [Unknown]
  - Pain [Unknown]
  - Infection [Recovered/Resolved]
  - Pyrexia [Recovered/Resolved]

NARRATIVE: CASE EVENT DATE: 20240101
